FAERS Safety Report 4959849-9 (Version None)
Quarter: 2006Q1

REPORT INFORMATION
  Report Type: 
  Country: None (occurrence: None)
  Receive Date: 20060331
  Receipt Date: 20050928
  Transmission Date: 20060701
  Serious: Yes (Death, Hospitalization, Other)
  Sender: FDA-Public Use
  Company Number: US-MERCK-0509USA04938

PATIENT
  Age: 64 Year
  Sex: Male
  Weight: 123 kg

DRUGS (11)
  1. VIOXX [Suspect]
     Indication: ARTHRITIS
     Route: 048
     Dates: start: 19990101, end: 20040101
  2. ALLEGRA [Concomitant]
     Route: 065
  3. PREDNISONE [Concomitant]
     Route: 065
  4. COMBIVENT [Concomitant]
     Route: 065
  5. LASIX [Concomitant]
     Route: 065
  6. ISOSORBIDE [Concomitant]
     Route: 065
  7. LANOXIN [Concomitant]
     Route: 065
  8. LISINOPRIL [Concomitant]
     Route: 065
  9. PROTONIX [Concomitant]
     Route: 065
  10. AVANDIA [Concomitant]
     Route: 065
  11. FLOMAX [Concomitant]
     Route: 065

REACTIONS (11)
  - CARDIAC DISORDER [None]
  - CARDIAC FAILURE CONGESTIVE [None]
  - CARPAL TUNNEL SYNDROME [None]
  - CEREBROVASCULAR ACCIDENT [None]
  - CORONARY ARTERY DISEASE [None]
  - DEATH [None]
  - HYPERTENSIVE HEART DISEASE [None]
  - LUNG DISORDER [None]
  - PERIPHERAL VASCULAR DISORDER [None]
  - RENAL DISORDER [None]
  - URINARY TRACT DISORDER [None]
